FAERS Safety Report 9462066 (Version 1)
Quarter: 2013Q3

REPORT INFORMATION
  Report Type: Spontaneous
  Country: US (occurrence: None)
  Receive Date: 20130815
  Receipt Date: 20130815
  Transmission Date: 20140515
  Serious: Yes (Hospitalization)
  Sender: FDA-Public Use
  Company Number: None

PATIENT
  Age: 70 Year
  Sex: Female
  Weight: 92.2 kg

DRUGS (17)
  1. AUGMENTIN [Suspect]
     Indication: DERMATITIS
     Dosage: 875/125  Q12H PO
     Route: 048
  2. KLOR-CON [Concomitant]
  3. PRAVASTATIN [Concomitant]
  4. APAP [Concomitant]
  5. FOSAMAX [Concomitant]
  6. EC ASA [Concomitant]
  7. FEMARA [Concomitant]
  8. ZYRTEC [Concomitant]
  9. CALTRATE [Concomitant]
  10. MIRAPEX [Concomitant]
  11. HUMALOG [Concomitant]
  12. FLUOCINONIDE [Concomitant]
  13. JANUMET [Concomitant]
  14. TORSEMIDE [Concomitant]
  15. GLIMEPIRIDE [Concomitant]
  16. CITALOPRAM [Concomitant]
  17. FLUTICASONE [Concomitant]

REACTIONS (7)
  - Cellulitis [None]
  - Skin candida [None]
  - Venous insufficiency [None]
  - Dermatitis [None]
  - Stevens-Johnson syndrome [None]
  - Rash maculo-papular [None]
  - Diabetes mellitus inadequate control [None]
